FAERS Safety Report 4465764-X (Version None)
Quarter: 2004Q4

REPORT INFORMATION
  Report Type: 
  Country: None (occurrence: None)
  Receive Date: 20041001
  Receipt Date: 20041001
  Transmission Date: 20050328
  Serious: Yes (Life-Threatening, Other)
  Sender: FDA-Public Use
  Company Number: None

PATIENT
  Age: 41 Year
  Sex: Female
  Weight: 99.7913 kg

DRUGS (3)
  1. SYMBYAX [Suspect]
     Indication: AFFECTIVE DISORDER
     Dosage: 1 PILL  ONCE PER DAY  ORAL
     Route: 048
     Dates: start: 20040925, end: 20040929
  2. SYMBYAX [Suspect]
     Indication: BIPOLAR DISORDER
     Dosage: 1 PILL  ONCE PER DAY  ORAL
     Route: 048
     Dates: start: 20040925, end: 20040929
  3. SYMBYAX [Suspect]

REACTIONS (3)
  - ABDOMINAL DISTENSION [None]
  - MOVEMENT DISORDER [None]
  - WEIGHT INCREASED [None]
